FAERS Safety Report 4804210-0 (Version None)
Quarter: 2005Q4

REPORT INFORMATION
  Report Type: 
  Country: None (occurrence: None)
  Receive Date: 20051017
  Receipt Date: 20051003
  Transmission Date: 20060501
  Serious: Yes (Other)
  Sender: FDA-Public Use
  Company Number: 2005RR-00680

PATIENT
  Sex: Female
  Weight: 68 kg

DRUGS (5)
  1. CLARITHROMYCIN [Suspect]
     Indication: DYSPEPSIA
     Dosage: ORAL
     Route: 048
     Dates: start: 20050720, end: 20050722
  2. AMOTAKS () [Suspect]
     Indication: DYSPEPSIA
     Dosage: ORAL
     Route: 048
     Dates: start: 20050720, end: 20050722
  3. METRONIDAZOLE [Suspect]
     Indication: DYSPEPSIA
     Dosage: ORAL
     Route: 048
     Dates: start: 20050720, end: 20050722
  4. KETOCONAZOLE [Suspect]
     Dosage: ORAL
     Route: 048
     Dates: start: 20050720, end: 20050722
  5. CONTROLOC [Suspect]
     Dosage: ORAL
     Route: 048
     Dates: start: 20050720, end: 20050722

REACTIONS (4)
  - DIARRHOEA [None]
  - DUODENAL ULCER [None]
  - HYPOCHROMIC ANAEMIA [None]
  - VOMITING [None]
